FAERS Safety Report 8293978-X (Version None)
Quarter: 2012Q2

REPORT INFORMATION
  Report Type: 
  Country: None (occurrence: None)
  Receive Date: 20120413
  Receipt Date: 20120413
  Transmission Date: 20120825
  Serious: No
  Sender: FDA-Public Use
  Company Number: None

PATIENT
  Age: 41 Year
  Sex: Female
  Weight: 81.6475 kg

DRUGS (1)
  1. FLUOXETINE [Suspect]
     Indication: DEPRESSION
     Dosage: 20MG ONE DAILY PO
     Route: 048

REACTIONS (2)
  - RASH [None]
  - PRURITUS [None]
